FAERS Safety Report 25090213 (Version 1)
Quarter: 2025Q1

REPORT INFORMATION
  Report Type: Report from Study
  Country: US (occurrence: US)
  Receive Date: 20250318
  Receipt Date: 20250318
  Transmission Date: 20250408
  Serious: Yes (Hospitalization, Other)
  Sender: MYLAN
  Company Number: US-MYLANLABS-2025M1022352

PATIENT
  Age: 65 Year
  Sex: Female

DRUGS (6)
  1. EFFEXOR [Suspect]
     Active Substance: VENLAFAXINE HYDROCHLORIDE
     Indication: Product used for unknown indication
  2. KEVEYIS [Suspect]
     Active Substance: DICHLORPHENAMIDE
     Indication: Paralysis
  3. KEVEYIS [Suspect]
     Active Substance: DICHLORPHENAMIDE
     Dosage: 75 MILLIGRAM, BID (1.5 TABLETS, 2X/DAY)
     Dates: start: 20221111, end: 20231117
  4. KEVEYIS [Suspect]
     Active Substance: DICHLORPHENAMIDE
     Dosage: 75 MILLIGRAM, BID  (1.5 TABLETS, 2X/DAY)
     Dates: start: 20231117, end: 20241113
  5. KEVEYIS [Suspect]
     Active Substance: DICHLORPHENAMIDE
     Dosage: 75 MILLIGRAM, BID  (1.5 TABLETS, 2X/DAY)
     Dates: start: 20241113, end: 20250106
  6. KEVEYIS [Suspect]
     Active Substance: DICHLORPHENAMIDE
     Dosage: 75 MILLIGRAM, BID  (1.5 TABLETS, 2X/DAY)
     Dates: start: 20250106

REACTIONS (64)
  - Food poisoning [Unknown]
  - Lung disorder [Unknown]
  - Influenza [Unknown]
  - Cough [Unknown]
  - Gait disturbance [Unknown]
  - Asthenia [Unknown]
  - Anxiety [Unknown]
  - Myalgia [Unknown]
  - Muscle fatigue [Unknown]
  - Appetite disorder [Unknown]
  - Muscular weakness [Unknown]
  - Blood bicarbonate decreased [Unknown]
  - Pyrexia [Unknown]
  - Brain fog [Unknown]
  - Abdominal discomfort [Unknown]
  - Vision blurred [Unknown]
  - Productive cough [Unknown]
  - Feeling abnormal [Unknown]
  - Bone pain [Unknown]
  - Chest pain [Unknown]
  - Depression [Unknown]
  - Hypersomnia [Unknown]
  - Injury [Unknown]
  - Rhinorrhoea [Unknown]
  - Nasal congestion [Unknown]
  - Pain [Unknown]
  - Familial periodic paralysis [Unknown]
  - Pulmonary function test decreased [Unknown]
  - Panic reaction [Unknown]
  - Stress [Unknown]
  - Blood urea decreased [Unknown]
  - Nightmare [Unknown]
  - Carbon dioxide increased [Unknown]
  - Diaphragmatic disorder [Unknown]
  - Renal disorder [Unknown]
  - Chromaturia [Unknown]
  - Dysphagia [Unknown]
  - Illness [Unknown]
  - Aphasia [Unknown]
  - Electrocardiogram T wave abnormal [Unknown]
  - Blood creatinine increased [Unknown]
  - Blood calcium abnormal [Unknown]
  - Hypoaesthesia [Unknown]
  - Taste disorder [Unknown]
  - Paralysis [Unknown]
  - Fall [Unknown]
  - Unevaluable event [Unknown]
  - Blood potassium decreased [Unknown]
  - Syncope [Unknown]
  - Metabolic acidosis [Unknown]
  - Malaise [Unknown]
  - Fatigue [Unknown]
  - Electrocardiogram QT prolonged [Unknown]
  - Insomnia [Unknown]
  - Blood sodium decreased [Unknown]
  - Heart rate increased [Unknown]
  - Dry mouth [Unknown]
  - Nausea [Unknown]
  - Diarrhoea [Unknown]
  - Rash [Unknown]
  - Dyspnoea [Unknown]
  - Pruritus [Unknown]
  - COVID-19 [Unknown]
  - Product dose omission in error [Unknown]

NARRATIVE: CASE EVENT DATE: 20250104
